FAERS Safety Report 10408589 (Version 2)
Quarter: 2014Q3

REPORT INFORMATION
  Report Type: Spontaneous
  Country: BR (occurrence: BR)
  Receive Date: 20140826
  Receipt Date: 20140926
  Transmission Date: 20150326
  Serious: Yes (Other)
  Sender: FDA-Public Use
  Company Number: PHHY2014BR105890

PATIENT
  Age: 71 Year
  Sex: Female
  Weight: 49 kg

DRUGS (5)
  1. GLIFAGE [Concomitant]
     Active Substance: METFORMIN HYDROCHLORIDE
     Indication: DIABETES MELLITUS
     Dosage: 1 DF, DAILY
     Route: 048
  2. DIOVAN [Suspect]
     Active Substance: VALSARTAN
     Dosage: UNK
  3. ONBREZ [Suspect]
     Active Substance: INDACATEROL
     Indication: PULMONARY EMBOLISM
     Dosage: 1 DF, DAILY
     Route: 055
     Dates: start: 201403
  4. SIMVASTATIN. [Concomitant]
     Active Substance: SIMVASTATIN
     Indication: VENOUS THROMBOSIS
     Dosage: 1 DF, DAILY
     Route: 048
  5. EXFORGE HCT [Suspect]
     Active Substance: AMLODIPINE BESYLATE\HYDROCHLOROTHIAZIDE\VALSARTAN
     Indication: HYPERTENSION
     Dosage: 1 DF, DAILY
     Route: 048

REACTIONS (5)
  - Pain [Not Recovered/Not Resolved]
  - Cough [Not Recovered/Not Resolved]
  - Pyrexia [Not Recovered/Not Resolved]
  - Blood pressure increased [Recovered/Resolved]
  - Facial pain [Not Recovered/Not Resolved]

NARRATIVE: CASE EVENT DATE: 20140816
